FAERS Safety Report 4335464-5 (Version None)
Quarter: 2004Q2

REPORT INFORMATION
  Report Type: 
  Country: None (occurrence: None)
  Receive Date: 20040406
  Receipt Date: 20040324
  Transmission Date: 20050107
  Serious: Yes (Life-Threatening)
  Sender: FDA-Public Use
  Company Number: 2001-BP-00742

PATIENT
  Age: 38 Year

DRUGS (2)
  1. VIRAMUNE [Suspect]
     Indication: HIV INFECTION
     Dosage: 400 MG (NR, 1 TABLET BID), PO
     Route: 048
     Dates: start: 20000512
  2. ABT-378/R [Suspect]
     Dosage: PO
     Route: 048
     Dates: start: 20000512

REACTIONS (1)
  - BLOOD TRIGLYCERIDES INCREASED [None]
